FAERS Safety Report 7532305-X (Version None)
Quarter: 2011Q2

REPORT INFORMATION
  Report Type: 
  Country: None (occurrence: None)
  Receive Date: 20110608
  Receipt Date: 20110607
  Transmission Date: 20111010
  Serious: Yes (Other)
  Sender: FDA-Public Use
  Company Number: US-BRISTOL-MYERS SQUIBB COMPANY-15810328

PATIENT
  Age: 39 Year
  Sex: Female

DRUGS (4)
  1. SEROQUEL [Concomitant]
     Dates: start: 20100101
  2. CITALOPRAM HYDROBROMIDE [Concomitant]
     Indication: DEPRESSION
     Dates: start: 20100101
  3. TOPAMAX [Concomitant]
     Indication: DEPRESSION
     Dates: start: 20100101
  4. ABILIFY [Suspect]
     Indication: DEPRESSION
     Dosage: LAST DOSE:06JUN11
     Dates: start: 20110501

REACTIONS (2)
  - SUICIDE ATTEMPT [None]
  - TACHYPHRENIA [None]
